FAERS Safety Report 5820173-3 (Version None)
Quarter: 2008Q3

REPORT INFORMATION
  Report Type: 
  Country: None (occurrence: None)
  Receive Date: 20080724
  Receipt Date: 20080716
  Transmission Date: 20090109
  Serious: Yes (Hospitalization)
  Sender: FDA-Public Use
  Company Number: PHHY2008GR14699

PATIENT
  Sex: Male
  Weight: 70 kg

DRUGS (8)
  1. DIOVAN [Suspect]
     Dosage: 80 MG, QD
     Dates: start: 20070102, end: 20080716
  2. LOPRESSOR [Suspect]
     Dosage: 3X1/4 OF 100 MG
  3. ONE-ALPHA [Concomitant]
     Dosage: 4X0.25
  4. THYROXIN [Concomitant]
  5. CALCIORAL [Concomitant]
     Dosage: 500 MG, TID
  6. LEXOTANIL [Concomitant]
  7. GAVISCON [Concomitant]
     Indication: STOMACH DISCOMFORT
  8. PARIET [Concomitant]
     Dosage: 20 MG MORNING AND NIGHT

REACTIONS (6)
  - BLOOD IRON DECREASED [None]
  - ERYTHEMA [None]
  - GASTRITIS [None]
  - HYPOGLYCAEMIA [None]
  - OESOPHAGITIS [None]
  - PALPITATIONS [None]
